FAERS Safety Report 7727343-8 (Version None)
Quarter: 2011Q3

REPORT INFORMATION
  Report Type: 
  Country: None (occurrence: None)
  Receive Date: 20110902
  Receipt Date: 20110829
  Transmission Date: 20111222
  Serious: Yes (Other)
  Sender: FDA-Public Use
  Company Number: BE-ABBOTT-11P-013-0850320-00

PATIENT
  Sex: Male
  Weight: 72 kg

DRUGS (2)
  1. LUPRON DEPOT [Suspect]
     Indication: PROSTATE CANCER
     Dates: start: 20080131
  2. BICALUTAMIDE [Concomitant]
     Indication: ANTIANDROGEN THERAPY
     Dates: start: 20080131

REACTIONS (1)
  - RECTAL CANCER METASTATIC [None]
